FAERS Safety Report 15108755 (Version 2)
Quarter: 2018Q3

REPORT INFORMATION
  Report Type: Spontaneous
  Country: CA (occurrence: CA)
  Receive Date: 20180705
  Receipt Date: 20180724
  Transmission Date: 20181010
  Serious: Yes (Life-Threatening, Other)
  Sender: FDA-Public Use
  Company Number: CA-BAUSCH-BL-2018-018138

PATIENT
  Age: 71 Year
  Sex: Female

DRUGS (2)
  1. HEPARIN SODIUM. [Suspect]
     Active Substance: HEPARIN SODIUM
     Indication: CEREBROVASCULAR ACCIDENT
     Dosage: SOLUTION INTRAVENOUS
     Route: 065
  2. PHENYLEPHRINE HCL [Suspect]
     Active Substance: PHENYLEPHRINE HYDROCHLORIDE
     Indication: BLOOD PRESSURE MANAGEMENT
     Route: 065

REACTIONS (5)
  - Acute kidney injury [Unknown]
  - Abdominal compartment syndrome [Unknown]
  - Abdominal wall haematoma [Unknown]
  - Urinary tract obstruction [Unknown]
  - Hydronephrosis [Unknown]
